FAERS Safety Report 4638429-9 (Version None)
Quarter: 2005Q2

REPORT INFORMATION
  Report Type: 
  Country: None (occurrence: None)
  Receive Date: 20050415
  Receipt Date: 20050411
  Transmission Date: 20051028
  Serious: Yes (Life-Threatening, Hospitalization, Disabling)
  Sender: FDA-Public Use
  Company Number: 200510123BCA

PATIENT
  Age: 82 Year
  Sex: Female

DRUGS (9)
  1. AVELOX [Suspect]
     Indication: PNEUMONIA
     Dosage: 400 MG, TOTAL DAILY, ORAL
     Route: 048
     Dates: start: 20050214, end: 20050219
  2. OXYBUTYN [Concomitant]
  3. COLACE [Concomitant]
  4. SENOKAT [Concomitant]
  5. ASPIRIN [Concomitant]
  6. CARDIZEM [Concomitant]
  7. FLOVENT [Concomitant]
  8. LIPITOR [Concomitant]
  9. NGT [Concomitant]

REACTIONS (3)
  - ANAEMIA [None]
  - NEPHRITIS INTERSTITIAL [None]
  - RENAL FAILURE [None]
